FAERS Safety Report 20852185 (Version 1)
Quarter: 2022Q2

REPORT INFORMATION
  Report Type: Spontaneous
  Country: US (occurrence: US)
  Receive Date: 20220520
  Receipt Date: 20220520
  Transmission Date: 20220721
  Serious: No
  Sender: FDA-Public Use
  Company Number: US-TEVA-2022-US-2030811

PATIENT
  Age: 38 Year
  Sex: Female
  Weight: 55.79 kg

DRUGS (7)
  1. ARMODAFINIL [Suspect]
     Active Substance: ARMODAFINIL
     Dosage: STRENGTH: 50 MG
     Route: 065
  2. FISH OIL [Concomitant]
     Active Substance: FISH OIL
  3. CLARITIN [Concomitant]
     Active Substance: LORATADINE
  4. VITAMINS [Concomitant]
     Active Substance: VITAMINS
  5. VITAMIN D [Concomitant]
     Active Substance: VITAMIN D NOS
  6. CALCIUM [Concomitant]
     Active Substance: CALCIUM
  7. PEPCID [Concomitant]
     Active Substance: FAMOTIDINE
     Dosage: STARTED 2 WEEKS AGO
     Dates: start: 202204

REACTIONS (4)
  - Maternal exposure during pregnancy [Unknown]
  - Palpitations [Unknown]
  - Therapeutic product effect decreased [Unknown]
  - Feeling abnormal [Unknown]

NARRATIVE: CASE EVENT DATE: 20210101
